FAERS Safety Report 25537759 (Version 1)
Quarter: 2025Q3

REPORT INFORMATION
  Report Type: Spontaneous
  Country: US (occurrence: US)
  Receive Date: 20250710
  Receipt Date: 20250710
  Transmission Date: 20251020
  Serious: No
  Sender: ROCHE
  Company Number: US-ROCHE-10000328370

PATIENT
  Sex: Female

DRUGS (9)
  1. XOLAIR [Suspect]
     Active Substance: OMALIZUMAB
     Indication: Urticaria
     Route: 058
     Dates: start: 202501, end: 202506
  2. EPINEPHRINE SOA [Concomitant]
  3. ESOMEPRAZOLE CPD 40 MG [Concomitant]
  4. HYDROCODONE TAB 10-325 MG [Concomitant]
  5. HYDROXYCHLOR TAB 200 MG [Concomitant]
  6. LINZESS CAP 290 MCG [Concomitant]
  7. MONTELUKAST TAB 10 MG [Concomitant]
  8. TIROSINT CAP 200 MCG [Concomitant]
  9. TIZANIDINE H CAP 4 MG [Concomitant]

REACTIONS (2)
  - Off label use [Unknown]
  - No adverse event [Unknown]
